FAERS Safety Report 7251875-2 (Version None)
Quarter: 2011Q1

REPORT INFORMATION
  Report Type: 
  Country: None (occurrence: None)
  Receive Date: 20110128
  Receipt Date: 20100108
  Transmission Date: 20110831
  Serious: No
  Sender: FDA-Public Use
  Company Number: US-ABBOTT-09P-163-0612161-00

PATIENT
  Sex: Female
  Weight: 76.726 kg

DRUGS (2)
  1. HUMIRA [Suspect]
     Indication: CROHN'S DISEASE
     Dates: start: 20080101, end: 20081201
  2. HUMIRA [Suspect]
     Dates: start: 20081201

REACTIONS (3)
  - DIARRHOEA [None]
  - ABSCESS INTESTINAL [None]
  - ABDOMINAL PAIN [None]
